FAERS Safety Report 8327601-2 (Version None)
Quarter: 2012Q2

REPORT INFORMATION
  Report Type: 
  Country: None (occurrence: None)
  Receive Date: 20120502
  Receipt Date: 20120418
  Transmission Date: 20120825
  Serious: Yes (Disabling, Other)
  Sender: FDA-Public Use
  Company Number: CN-JNJFOC-20110100005

PATIENT
  Sex: Female
  Weight: 10 kg

DRUGS (3)
  1. TOPAMAX [Suspect]
     Route: 048
     Dates: start: 20100701, end: 20100731
  2. TOPAMAX [Suspect]
     Route: 048
  3. TOPAMAX [Suspect]
     Indication: EPILEPSY
     Route: 048
     Dates: start: 20100801

REACTIONS (6)
  - SLOW RESPONSE TO STIMULI [None]
  - DRUG PRESCRIBING ERROR [None]
  - FATIGUE [None]
  - DISTURBANCE IN ATTENTION [None]
  - ASTHENIA [None]
  - WRONG TECHNIQUE IN DRUG USAGE PROCESS [None]
